FAERS Safety Report 8921236 (Version 1)
Quarter: 2012Q4

REPORT INFORMATION
  Report Type: 
  Country: DE (occurrence: DE)
  Receive Date: 20121121
  Receipt Date: 20121121
  Transmission Date: 20130627
  Serious: Yes (Other)
  Sender: FDA-Public Use
  Company Number: DE-GLAXOSMITHKLINE-D0077848A

PATIENT
  Sex: Female

DRUGS (1)
  1. BENLYSTA [Suspect]
     Route: 042

REACTIONS (3)
  - Anaphylactic reaction [Unknown]
  - Blood pressure decreased [Unknown]
  - Cardiovascular disorder [Unknown]
